FAERS Safety Report 11051369 (Version 6)
Quarter: 2015Q4

REPORT INFORMATION
  Report Type: Spontaneous
  Country: US (occurrence: US)
  Receive Date: 20150421
  Receipt Date: 20151218
  Transmission Date: 20160304
  Serious: No
  Sender: FDA-Public Use
  Company Number: US-PFIZER INC-2015130918

PATIENT
  Age: 68 Year
  Sex: Female
  Weight: 79 kg

DRUGS (14)
  1. VITAMIN D /00107901/ [Concomitant]
     Active Substance: ERGOCALCIFEROL
     Dosage: UNK
     Dates: start: 1996
  2. INLYTA [Suspect]
     Active Substance: AXITINIB
     Indication: RENAL CANCER METASTATIC
     Dosage: 10 MG, 2X/DAY
     Dates: start: 201301
  3. INLYTA [Suspect]
     Active Substance: AXITINIB
     Dosage: 7 MG, UNK
  4. VITAMIN E [Concomitant]
     Active Substance: .ALPHA.-TOCOPHEROL
     Dosage: UNK
     Dates: start: 1996
  5. INLYTA [Suspect]
     Active Substance: AXITINIB
     Dosage: 10 MG, 2X/DAY
     Dates: start: 201404
  6. INLYTA [Suspect]
     Active Substance: AXITINIB
     Dosage: 10 MG, 2X/DAY (10 MG IN THE MORNING AND 10 MG AT NIGHT)
     Dates: start: 201504
  7. CALCIUM [Concomitant]
     Active Substance: CALCIUM
     Dosage: 1 DF, UNK
     Dates: start: 2005
  8. INLYTA [Suspect]
     Active Substance: AXITINIB
     Dosage: 5 MG, UNK
  9. LEVOTHYROXINE. [Concomitant]
     Active Substance: LEVOTHYROXINE
     Indication: THYROID DISORDER
     Dosage: 125 ?G, DAILY (ONE A DAY)
     Dates: start: 1974
  10. NEXIUM [Concomitant]
     Active Substance: ESOMEPRAZOLE MAGNESIUM
     Indication: DYSPEPSIA
     Dosage: 40 MG, 1X/DAY
     Dates: start: 2005
  11. AMLODIPINE BESYLATE. [Concomitant]
     Active Substance: AMLODIPINE BESYLATE
     Indication: HYPERTENSION
     Dosage: 2.5 MG, UNK
     Dates: start: 20150521
  12. INLYTA [Suspect]
     Active Substance: AXITINIB
     Dosage: 7 MG, 2X/DAY (7 MG IN THE MORNING AND 7 AT NIGHT)
     Dates: start: 20131214
  13. NEXIUM [Concomitant]
     Active Substance: ESOMEPRAZOLE MAGNESIUM
     Dosage: UNK
     Dates: start: 2000
  14. WOMEN^S ONE A DAY VITAMIN [Concomitant]
     Dosage: 1 DF, UNK (1000 I.U.)
     Dates: start: 1996

REACTIONS (5)
  - Disease progression [Not Recovered/Not Resolved]
  - Renal cancer metastatic [Not Recovered/Not Resolved]
  - Diarrhoea [Not Recovered/Not Resolved]
  - Hypertension [Recovered/Resolved]
  - Nail disorder [Not Recovered/Not Resolved]

NARRATIVE: CASE EVENT DATE: 201504
